FAERS Safety Report 22339439 (Version 1)
Quarter: 2023Q2

REPORT INFORMATION
  Report Type: Spontaneous
  Country: AR (occurrence: AR)
  Receive Date: 20230518
  Receipt Date: 20230518
  Transmission Date: 20230722
  Serious: Yes (Other)
  Sender: FDA-Public Use
  Company Number: AR-PFIZER INC-PV202300086622

PATIENT
  Age: 52 Year
  Sex: Female

DRUGS (3)
  1. IBRANCE [Suspect]
     Active Substance: PALBOCICLIB
     Indication: Breast cancer metastatic
     Dosage: 125 MG, CYCLIC (DAILY, SCHEME 3X1)
     Dates: start: 20190809
  2. PALBOCICLIB [Suspect]
     Active Substance: PALBOCICLIB
  3. LETROZOLE [Concomitant]
     Active Substance: LETROZOLE

REACTIONS (9)
  - Neutropenia [Unknown]
  - Cytomegalovirus infection reactivation [Unknown]
  - Mental impairment [Unknown]
  - Immunosuppression [Unknown]
  - Fatigue [Unknown]
  - Pyrexia [Unknown]
  - Osteoporosis [Unknown]
  - Stress [Unknown]
  - Somnolence [Unknown]

NARRATIVE: CASE EVENT DATE: 20230501
